FAERS Safety Report 16646610 (Version 1)
Quarter: 2019Q3

REPORT INFORMATION
  Report Type: Spontaneous
  Country: GB (occurrence: GB)
  Receive Date: 20190730
  Receipt Date: 20190730
  Transmission Date: 20191004
  Serious: Yes (Disabling, Other)
  Sender: FDA-Public Use
  Company Number: GB-ACCORD-149709

PATIENT
  Age: 84 Year
  Sex: Male
  Weight: 107 kg

DRUGS (8)
  1. ATENOLOL/ATENOLOL HYDROCHLORIDE [Concomitant]
     Dosage: EACH MORNING
     Dates: start: 20181130
  2. ACETYLSALICYLIC ACID [Concomitant]
     Active Substance: ASPIRIN
     Dates: start: 20181130
  3. ATORVASTATIN/ATORVASTATIN CALCIUM [Suspect]
     Active Substance: ATORVASTATIN CALCIUM
     Indication: PRODUCT USED FOR UNKNOWN INDICATION
     Dosage: AT NIGHT
     Dates: start: 20190624
  4. DOXAZOSIN [Concomitant]
     Active Substance: DOXAZOSIN MESYLATE
     Dates: start: 20181130
  5. OMEPRAZOLE. [Concomitant]
     Active Substance: OMEPRAZOLE
     Dosage: TAKE ONE OR TWO DAILY
     Dates: start: 20180611
  6. LOSARTAN. [Concomitant]
     Active Substance: LOSARTAN
     Dates: start: 20181130
  7. SALBUTAMOL [Concomitant]
     Active Substance: ALBUTEROL
     Route: 055
     Dates: start: 20190128
  8. SIMVASTATIN. [Concomitant]
     Active Substance: SIMVASTATIN
     Dosage: EACH NIGHT
     Dates: start: 20181130, end: 20190624

REACTIONS (3)
  - Neck pain [Unknown]
  - Genital swelling [Unknown]
  - Headache [Recovered/Resolved]
